FAERS Safety Report 4317856-3 (Version None)
Quarter: 2004Q1

REPORT INFORMATION
  Report Type: 
  Country: None (occurrence: None)
  Receive Date: 20040316
  Receipt Date: 20031209
  Transmission Date: 20041129
  Serious: Yes (Hospitalization)
  Sender: FDA-Public Use
  Company Number: US-BRISTOL-MYERS SQUIBB COMPANY-12454047

PATIENT
  Age: 16 Year
  Sex: Female
  Weight: 52 kg

DRUGS (4)
  1. ATAZANAVIR [Suspect]
     Indication: HIV INFECTION
     Dates: start: 20031015, end: 20031023
  2. DIDANOSINE [Suspect]
     Indication: HIV INFECTION
     Dates: start: 20031015
  3. STAVUDINE [Suspect]
     Indication: HIV INFECTION
     Dates: start: 20031015
  4. BACTRIM [Concomitant]

REACTIONS (3)
  - ATRIOVENTRICULAR BLOCK FIRST DEGREE [None]
  - ATRIOVENTRICULAR BLOCK SECOND DEGREE [None]
  - HYPERBILIRUBINAEMIA [None]
